FAERS Safety Report 5938224-4 (Version None)
Quarter: 2008Q4

REPORT INFORMATION
  Report Type: 
  Country: None (occurrence: None)
  Receive Date: 20081031
  Receipt Date: 20081021
  Transmission Date: 20090506
  Serious: Yes (Hospitalization)
  Sender: FDA-Public Use
  Company Number: AR-PFIZER INC-2008089305

PATIENT
  Age: 30 Year
  Sex: Male

DRUGS (1)
  1. VORICONAZOLE [Suspect]

REACTIONS (1)
  - CAPILLARY LEAK SYNDROME [None]
